FAERS Safety Report 9602872 (Version 2)
Quarter: 2013Q4

REPORT INFORMATION
  Report Type: Spontaneous
  Country: US (occurrence: US)
  Receive Date: 20131007
  Receipt Date: 20131104
  Transmission Date: 20140711
  Serious: No
  Sender: FDA-Public Use
  Company Number: US-009507513-1309USA008841

PATIENT
  Age: 62 Year
  Sex: Male
  Weight: 82.99 kg

DRUGS (10)
  1. VICTRELIS [Suspect]
     Dosage: 800 MG (4 CAPS) BY MOUTH EVERY 8 HOURS
     Route: 048
  2. VICTRELIS [Suspect]
     Dosage: 1000 MG, Q8H
  3. PEGASYS [Suspect]
     Dosage: 180 MCG/M
  4. RIBAPAK [Suspect]
     Dosage: 600 DF, QD
  5. PRINIVIL [Concomitant]
     Route: 048
  6. HYDROCHLOROTHIAZIDE (+) TRIAMTERENE [Concomitant]
     Dosage: 25-31.5 MG
     Route: 048
  7. ONDANSETRON HYDROCHLORIDE [Concomitant]
     Route: 048
  8. CILOSTAZOL [Concomitant]
     Route: 048
  9. ASPIRIN [Concomitant]
     Route: 048
  10. HALOBETASOL PROPIONATE [Concomitant]

REACTIONS (6)
  - Asthenia [Unknown]
  - Fatigue [Unknown]
  - Nausea [Unknown]
  - Fatigue [Unknown]
  - Cough [Unknown]
  - Dyspnoea [Unknown]
